FAERS Safety Report 18258812 (Version 2)
Quarter: 2020Q3

REPORT INFORMATION
  Report Type: Spontaneous
  Country: RU (occurrence: RU)
  Receive Date: 20200911
  Receipt Date: 20200915
  Transmission Date: 20201103
  Serious: Yes (Death, Hospitalization, Other)
  Sender: FDA-Public Use
  Company Number: RU-ABBVIE-20K-251-3559923-00

PATIENT
  Sex: Female

DRUGS (8)
  1. KALETRA [Suspect]
     Active Substance: LOPINAVIR\RITONAVIR
     Indication: COVID-19 PNEUMONIA
     Route: 048
  2. KALETRA [Suspect]
     Active Substance: LOPINAVIR\RITONAVIR
     Indication: COVID-19
  3. ARTLEGIA [Suspect]
     Active Substance: OLOKIZUMAB
     Indication: COVID-19
     Route: 058
     Dates: start: 20200807, end: 20200807
  4. CLEXANE [Suspect]
     Active Substance: ENOXAPARIN SODIUM
     Indication: COVID-19
  5. CLEXANE [Suspect]
     Active Substance: ENOXAPARIN SODIUM
     Indication: COVID-19 PNEUMONIA
     Route: 065
  6. MERONEM [Suspect]
     Active Substance: MEROPENEM
     Indication: COVID-19
     Route: 065
  7. MERONEM [Suspect]
     Active Substance: MEROPENEM
     Indication: COVID-19 PNEUMONIA
  8. INFIBETA [Concomitant]
     Indication: COVID-19 PNEUMONIA

REACTIONS (8)
  - Drug resistance [Fatal]
  - COVID-19 pneumonia [Fatal]
  - Off label use [Unknown]
  - Multiple organ dysfunction syndrome [Fatal]
  - Cardiac failure chronic [Fatal]
  - Sepsis [Fatal]
  - Pulmonary oedema [Fatal]
  - Septic shock [Fatal]

NARRATIVE: CASE EVENT DATE: 2020
